FAERS Safety Report 24562629 (Version 1)
Quarter: 2024Q4

REPORT INFORMATION
  Report Type: Spontaneous
  Country: JP (occurrence: JP)
  Receive Date: 20241029
  Receipt Date: 20241029
  Transmission Date: 20250115
  Serious: Yes (Hospitalization, Other)
  Sender: RECORDATI
  Company Number: JP-RECORDATI RARE DISEASE INC.-2023003988

PATIENT
  Age: 0 Year
  Sex: Female
  Weight: 1 kg

DRUGS (1)
  1. NEOPROFEN [Suspect]
     Active Substance: IBUPROFEN LYSINE
     Indication: Patent ductus arteriosus
     Dosage: 13 MILLIGRAM DAILY
     Route: 042
     Dates: start: 20191119, end: 20191119

REACTIONS (7)
  - Infantile apnoea [Recovered/Resolved]
  - Device related infection [Recovered/Resolved]
  - Zinc deficiency [Recovering/Resolving]
  - Osteopenia [Recovering/Resolving]
  - Jaundice [Recovered/Resolved]
  - Anaemia [Recovering/Resolving]
  - Renal impairment [Recovered/Resolved]

NARRATIVE: CASE EVENT DATE: 20191119
